FAERS Safety Report 4673536-6 (Version None)
Quarter: 2005Q2

REPORT INFORMATION
  Report Type: 
  Country: None (occurrence: None)
  Receive Date: 20050523
  Receipt Date: 20050511
  Transmission Date: 20051028
  Serious: Yes (Hospitalization)
  Sender: FDA-Public Use
  Company Number: 200510924BWH

PATIENT
  Sex: Female

DRUGS (3)
  1. AVELOX [Suspect]
     Dosage: ORAL
     Route: 048
  2. LIPITOR [Suspect]
  3. LEXAPRO [Concomitant]

REACTIONS (2)
  - NEPHRITIS INTERSTITIAL [None]
  - RENAL FAILURE ACUTE [None]
